FAERS Safety Report 20332587 (Version 2)
Quarter: 2022Q1

REPORT INFORMATION
  Report Type: Spontaneous
  Country: DE (occurrence: DE)
  Receive Date: 20220113
  Receipt Date: 20220301
  Transmission Date: 20220423
  Serious: Yes (Life-Threatening, Hospitalization)
  Sender: FDA-Public Use
  Company Number: DE-DCGMA-21190542

PATIENT
  Age: 49 Year
  Sex: Female

DRUGS (1)
  1. ADASUVE [Suspect]
     Active Substance: LOXAPINE
     Indication: Tension
     Dosage: ONE SINGLE DOSE
     Route: 055
     Dates: start: 20210520, end: 20210520

REACTIONS (5)
  - Dyspnoea [Recovered/Resolved]
  - Hyperhidrosis [Recovered/Resolved]
  - Respiratory arrest [Recovered/Resolved]
  - Dyspnoea [Recovered/Resolved]
  - Off label use [Unknown]

NARRATIVE: CASE EVENT DATE: 20210520
